FAERS Safety Report 6035883-5 (Version None)
Quarter: 2009Q1

REPORT INFORMATION
  Report Type: 
  Country: None (occurrence: None)
  Receive Date: 20090113
  Receipt Date: 20090109
  Transmission Date: 20090719
  Serious: Yes (Hospitalization)
  Sender: FDA-Public Use
  Company Number: A0718144A

PATIENT
  Age: 66 Year
  Sex: Male
  Weight: 109.1 kg

DRUGS (10)
  1. AVANDIA [Suspect]
     Dosage: 8MG PER DAY
     Route: 048
     Dates: start: 20010101
  2. LIPITOR [Concomitant]
  3. GLUCOVANCE [Concomitant]
  4. LEVITRA [Concomitant]
  5. CELEBREX [Concomitant]
  6. SINGULAIR [Concomitant]
  7. AVELOX [Concomitant]
  8. ACIPHEX [Concomitant]
  9. VIOXX [Concomitant]
  10. GLUCOPHAGE [Concomitant]

REACTIONS (2)
  - CARDIAC FAILURE CONGESTIVE [None]
  - HEART INJURY [None]
